FAERS Safety Report 4765228-X (Version None)
Quarter: 2005Q3

REPORT INFORMATION
  Report Type: 
  Country: None (occurrence: None)
  Receive Date: 20050906
  Receipt Date: 20050810
  Transmission Date: 20060218
  Serious: Yes (Life-Threatening)
  Sender: FDA-Public Use
  Company Number: DSA_26927_2005

PATIENT
  Age: 73 Year
  Sex: Female

DRUGS (5)
  1. RENIVACE [Suspect]
     Indication: HYPERTENSION
     Dosage: DF PO
     Route: 048
     Dates: end: 20050809
  2. NU LOTAN [Suspect]
     Indication: HYPERTENSION
     Dosage: DF PO
     Route: 048
     Dates: end: 20050809
  3. AMLODIN [Concomitant]
  4. ARGAMATE [Concomitant]
  5. ASPIRIN [Concomitant]

REACTIONS (2)
  - BRADYCARDIA [None]
  - HYPERKALAEMIA [None]
